FAERS Safety Report 17687689 (Version 1)
Quarter: 2020Q2

REPORT INFORMATION
  Report Type: Spontaneous
  Country: US (occurrence: US)
  Receive Date: 20200421
  Receipt Date: 20200421
  Transmission Date: 20200714
  Serious: No
  Sender: FDA-Public Use
  Company Number: US-BAYER-2020-066645

PATIENT
  Age: 64 Year
  Sex: Male

DRUGS (3)
  1. AMPYRA [Concomitant]
     Active Substance: DALFAMPRIDINE
     Dosage: TAKES AMPYRA IN THE EVENING
     Dates: start: 202002
  2. LOSARTAN. [Concomitant]
     Active Substance: LOSARTAN
     Dosage: 25 MG QD, TAKES LOSARTAN AN HOUR OS SO LATER THAN AMPYRA
     Route: 048
     Dates: start: 202003
  3. BETASERON [Suspect]
     Active Substance: INTERFERON BETA-1B

REACTIONS (2)
  - Eructation [None]
  - Abdominal distension [None]

NARRATIVE: CASE EVENT DATE: 20200403
